FAERS Safety Report 23976647 (Version 8)
Quarter: 2024Q4

REPORT INFORMATION
  Report Type: Spontaneous
  Country: PR (occurrence: PR)
  Receive Date: 20240614
  Receipt Date: 20241202
  Transmission Date: 20250115
  Serious: Yes (Other)
  Sender: PFIZER
  Company Number: PR-PFIZER INC-202400189067

PATIENT
  Age: 60 Year
  Sex: Female

DRUGS (1)
  1. GENOTROPIN [Suspect]
     Active Substance: SOMATROPIN
     Dosage: 0.6 MG, DAILY

REACTIONS (5)
  - Device use error [Unknown]
  - Device material issue [Unknown]
  - Injury associated with device [Unknown]
  - Device delivery system issue [Unknown]
  - Drug dose omission by device [Unknown]
